FAERS Safety Report 18458078 (Version 1)
Quarter: 2020Q4

REPORT INFORMATION
  Report Type: Spontaneous
  Country: US (occurrence: US)
  Receive Date: 20201103
  Receipt Date: 20201103
  Transmission Date: 20210114
  Serious: No
  Sender: FDA-Public Use
  Company Number: US-FARMAPROD-202009-1209

PATIENT
  Sex: Female

DRUGS (12)
  1. ELIQUIS [Concomitant]
     Active Substance: APIXABAN
  2. CELECOXIB. [Concomitant]
     Active Substance: CELECOXIB
  3. BUPROPION HCL [Concomitant]
     Active Substance: BUPROPION HYDROCHLORIDE
     Dosage: EXTEENDED RELEASE TABLET
  4. ATENOLOL. [Concomitant]
     Active Substance: ATENOLOL
  5. LEVO-T [Concomitant]
     Active Substance: LEVOTHYROXINE SODIUM
  6. PANTOPRAZOLE SODIUM. [Concomitant]
     Active Substance: PANTOPRAZOLE SODIUM
     Dosage: DELAY RELEASE TABLET
  7. LISINOPRIL. [Concomitant]
     Active Substance: LISINOPRIL
  8. OXCARBAZEPINE. [Concomitant]
     Active Substance: OXCARBAZEPINE
  9. OXERVATE [Suspect]
     Active Substance: CENEGERMIN-BKBJ
     Indication: NEUROTROPHIC KERATOPATHY
     Route: 047
     Dates: start: 20200715
  10. ROSUVASTATIN CALCIUM. [Concomitant]
     Active Substance: ROSUVASTATIN CALCIUM
  11. VALACYCLOVIR [Concomitant]
     Active Substance: VALACYCLOVIR HYDROCHLORIDE
  12. DIAZEPAM. [Concomitant]
     Active Substance: DIAZEPAM

REACTIONS (1)
  - Eye irritation [Recovered/Resolved]
